FAERS Safety Report 5631192-4 (Version None)
Quarter: 2008Q1

REPORT INFORMATION
  Report Type: 
  Country: None (occurrence: None)
  Receive Date: 20080219
  Receipt Date: 20080208
  Transmission Date: 20080703
  Serious: Yes (Other)
  Sender: FDA-Public Use
  Company Number: JP-PFIZER INC-2008013128

PATIENT
  Age: 57 Year

DRUGS (1)
  1. HALCION [Suspect]
     Indication: INSOMNIA
     Dosage: DAILY DOSE:.2MG
     Route: 048

REACTIONS (2)
  - AMNESIA [None]
  - DELINQUENCY [None]
